FAERS Safety Report 12450846 (Version 1)
Quarter: 2016Q2

REPORT INFORMATION
  Report Type: Report from Study
  Country: US (occurrence: US)
  Receive Date: 20160609
  Receipt Date: 20160609
  Transmission Date: 20160815
  Serious: Yes (Hospitalization, Other)
  Sender: FDA-Public Use
  Company Number: US-BAYER-2016-003610

PATIENT
  Age: 63 Year
  Sex: Female

DRUGS (2)
  1. NEXAVAR [Suspect]
     Active Substance: SORAFENIB
     Indication: MALIGNANT MELANOMA
     Dosage: 400 MG, BID
     Route: 048
     Dates: start: 20151013, end: 201510
  2. NEXAVAR [Suspect]
     Active Substance: SORAFENIB
     Indication: MALIGNANT MELANOMA
     Dosage: 400 MG, BID AS TOLERATED
     Route: 048
     Dates: start: 20151020, end: 20160414

REACTIONS (7)
  - Dermatitis acneiform [Not Recovered/Not Resolved]
  - Product use issue [None]
  - Pruritus generalised [Not Recovered/Not Resolved]
  - Arthralgia [Not Recovered/Not Resolved]
  - Off label use [None]
  - Terminal state [None]
  - Hospitalisation [None]

NARRATIVE: CASE EVENT DATE: 20151013
